FAERS Safety Report 9423005 (Version 1)
Quarter: 2013Q3

REPORT INFORMATION
  Report Type: Spontaneous
  Country: US (occurrence: US)
  Receive Date: 20130726
  Receipt Date: 20130726
  Transmission Date: 20140515
  Serious: No
  Sender: FDA-Public Use
  Company Number: US-009507513-1307USA009800

PATIENT
  Age: 5 Year
  Sex: Female

DRUGS (7)
  1. SINGULAIR [Suspect]
     Indication: ASTHMA
     Dosage: 4 MG, QPM
     Route: 048
     Dates: start: 2011, end: 201104
  2. SINGULAIR [Suspect]
     Dosage: 4 MG, QPM
     Route: 048
     Dates: start: 2012, end: 201204
  3. SINGULAIR [Suspect]
     Dosage: 4 MG, QPM
     Route: 048
     Dates: start: 2013, end: 201304
  4. SINGULAIR [Suspect]
     Dosage: 4 MG, QPM
     Route: 048
     Dates: start: 20130529, end: 20130707
  5. SINGULAIR [Suspect]
     Dosage: 4 MG, QPM
     Route: 048
     Dates: start: 20130714
  6. QVAR [Concomitant]
     Dosage: 4 MG ONCE DAILY IN THE EVENING
     Route: 048
     Dates: start: 2011, end: 201104
  7. QVAR [Concomitant]
     Dosage: UNK

REACTIONS (7)
  - Abnormal behaviour [Not Recovered/Not Resolved]
  - Emotional disorder [Not Recovered/Not Resolved]
  - Paraesthesia oral [Not Recovered/Not Resolved]
  - Grimacing [Not Recovered/Not Resolved]
  - Dyspnoea [Unknown]
  - Psychomotor hyperactivity [Not Recovered/Not Resolved]
  - Respiratory tract infection [Unknown]
